FAERS Safety Report 21239184 (Version 1)
Quarter: 2022Q3

REPORT INFORMATION
  Report Type: Spontaneous
  Country: CO (occurrence: CO)
  Receive Date: 20220822
  Receipt Date: 20220822
  Transmission Date: 20221027
  Serious: Yes (Hospitalization)
  Sender: FDA-Public Use
  Company Number: CO-VERTEX PHARMACEUTICALS-2022-012280

PATIENT
  Age: 12 Year
  Sex: Male

DRUGS (6)
  1. TRIKAFTA [Suspect]
     Active Substance: ELEXACAFTOR\IVACAFTOR\TEZACAFTOR
     Indication: Cystic fibrosis
     Dosage: UNK, QD
     Route: 048
     Dates: start: 20210317, end: 20220616
  2. TRIKAFTA [Suspect]
     Active Substance: ELEXACAFTOR\IVACAFTOR\TEZACAFTOR
     Dosage: UNK, QD
     Route: 048
     Dates: start: 20220804
  3. ALBUTEROL [Concomitant]
     Active Substance: ALBUTEROL
     Dosage: 10 DROPS
  4. TOBRAMYCIN [Concomitant]
     Active Substance: TOBRAMYCIN
     Dosage: UNK, QD
  5. DORNASE ALFA [Concomitant]
     Active Substance: DORNASE ALFA
     Dosage: UNK, QD
  6. SALMETEROL [Concomitant]
     Active Substance: SALMETEROL
     Dosage: UNK, QD

REACTIONS (2)
  - Pneumonia [Recovering/Resolving]
  - Product dose omission issue [Recovered/Resolved]

NARRATIVE: CASE EVENT DATE: 20220617
